FAERS Safety Report 8816873 (Version 1)
Quarter: 2012Q4

REPORT INFORMATION
  Report Type: Spontaneous
  Country: US (occurrence: None)
  Receive Date: 20121002
  Receipt Date: 20121002
  Transmission Date: 20130627
  Serious: Yes (Other)
  Sender: FDA-Public Use
  Company Number: 2010US003802

PATIENT
  Age: 46 Year
  Sex: Female

DRUGS (12)
  1. VESICARE [Suspect]
     Indication: STRESS URINARY INCONTINENCE
     Route: 048
  2. VESICARE [Suspect]
     Route: 048
  3. VITAMINS NOS [Concomitant]
  4. FANAPT (ILOPERIDONE) [Concomitant]
  5. GEODON (ZIPRASIDONE HYDROCHLORIDE) [Concomitant]
  6. LAMICTAL (LAMOTRIGINE) [Concomitant]
  7. TRAZODONE [Concomitant]
  8. SYNTHROID (LEVOTHYROXINE SODIUM) [Concomitant]
  9. ABILIFY (ARIPIPRAZOLE) [Concomitant]
  10. AMFETAMINE ASPARTATE, AMFETAMINE SULFATE, DEXAMFETAMINE SACCHARATE (AMFETAMINE ASPARTATE, AMFETAMINE SULFATE, DEXAMFETAMINE SACCHARATE, DEXAMFETAMINE SULFATE) [Concomitant]
  11. FLUTICASONE PROPIONATE [Concomitant]
  12. KLONOPIN (CLONAZEPAM) [Concomitant]

REACTIONS (12)
  - Mania [None]
  - Loss of consciousness [None]
  - Feeling hot [None]
  - Frequent bowel movements [None]
  - Impaired gastric emptying [None]
  - Insomnia [None]
  - Vision blurred [None]
  - Dry mouth [None]
  - Fatigue [None]
  - Urinary incontinence [None]
  - Constipation [None]
  - Heat stroke [None]
